FAERS Safety Report 23497978 (Version 1)
Quarter: 2024Q1

REPORT INFORMATION
  Report Type: Spontaneous
  Country: US (occurrence: None)
  Receive Date: 20240207
  Receipt Date: 20240207
  Transmission Date: 20240410
  Serious: No
  Sender: FDA-Public Use
  Company Number: US-ROCHE-3439805

PATIENT
  Sex: Female

DRUGS (2)
  1. XOLAIR [Suspect]
     Active Substance: OMALIZUMAB
     Indication: Urticaria
     Route: 058
  2. XOLAIR [Suspect]
     Active Substance: OMALIZUMAB

REACTIONS (7)
  - Pain [Unknown]
  - Product use complaint [Unknown]
  - Product complaint [Unknown]
  - Needle issue [Unknown]
  - Contusion [Unknown]
  - Discomfort [Unknown]
  - Wrong technique in product usage process [Unknown]
